FAERS Safety Report 5464648-8 (Version None)
Quarter: 2007Q3

REPORT INFORMATION
  Report Type: 
  Country: None (occurrence: None)
  Receive Date: 20070921
  Receipt Date: 20070913
  Transmission Date: 20080115
  Serious: Yes (Hospitalization)
  Sender: FDA-Public Use
  Company Number: JP-MERCK-0709USA02539

PATIENT
  Age: 80 Year
  Sex: Female

DRUGS (3)
  1. STROMECTOL [Suspect]
     Indication: ACARODERMATITIS
     Route: 048
     Dates: start: 20070804, end: 20070804
  2. STROMECTOL [Suspect]
     Route: 048
     Dates: start: 20070811, end: 20070811
  3. [THERAPY UNSPECIFIED] [Concomitant]
     Indication: ACARODERMATITIS
     Route: 061
     Dates: start: 20070804, end: 20070811

REACTIONS (2)
  - BLISTER [None]
  - ERYTHEMA [None]
